FAERS Safety Report 20539947 (Version 2)
Quarter: 2022Q1

REPORT INFORMATION
  Report Type: Spontaneous
  Country: US (occurrence: US)
  Receive Date: 20220302
  Receipt Date: 20220309
  Transmission Date: 20220423
  Serious: Yes (Other)
  Sender: FDA-Public Use
  Company Number: US-BAYER-2022A026485

PATIENT
  Age: 59 Year
  Sex: Male

DRUGS (4)
  1. JIVI [Suspect]
     Active Substance: DAMOCTOCOG ALFA PEGOL
     Dosage: 3000 IU
  2. JIVI [Suspect]
     Active Substance: DAMOCTOCOG ALFA PEGOL
     Dosage: UNK, FOR THE ANKLE AND TOE BLEED, SWELLING AND PAIN TREATMENT
  3. JIVI [Suspect]
     Active Substance: DAMOCTOCOG ALFA PEGOL
     Dosage: 2 DF, FOR THE RIGHT ANKLE BLEED, SWELLING AND PAIN TREATMENT
     Dates: start: 20220214, end: 20220214
  4. JIVI [Suspect]
     Active Substance: DAMOCTOCOG ALFA PEGOL
     Dosage: 1 DF, FOR THE RIGHT TOE BLEED, SWELLING AND PAIN TREATMENT
     Dates: start: 20220216, end: 20220216

REACTIONS (8)
  - Haemarthrosis [None]
  - Haemorrhage [None]
  - Arthralgia [None]
  - Joint swelling [None]
  - Peripheral swelling [None]
  - Pain in extremity [None]
  - Joint swelling [None]
  - Peripheral swelling [None]

NARRATIVE: CASE EVENT DATE: 20211208
